FAERS Safety Report 5537327-6 (Version None)
Quarter: 2007Q4

REPORT INFORMATION
  Report Type: 
  Country: None (occurrence: None)
  Receive Date: 20071207
  Receipt Date: 20071202
  Transmission Date: 20080405
  Serious: Yes (Other)
  Sender: FDA-Public Use
  Company Number: US-JNJFOC-20071200840

PATIENT
  Sex: Female
  Weight: 154.68 kg

DRUGS (9)
  1. TYLENOL [Suspect]
     Indication: DRUG USE FOR UNKNOWN INDICATION
     Route: 048
  2. DILANTIN [Concomitant]
     Indication: CONVULSION
  3. TRAZODONE HCL [Concomitant]
  4. AMBIEN [Concomitant]
  5. INVEGA [Concomitant]
  6. IRON [Concomitant]
  7. MULTI-VITAMIN [Concomitant]
     Dosage: ^1000MG DAILY^
  8. HYDROCHLOROTHIAZIDE [Concomitant]
     Indication: HYPERTENSION
  9. GEODON [Concomitant]

REACTIONS (4)
  - HEPATOCELLULAR DAMAGE [None]
  - INTENTIONAL OVERDOSE [None]
  - RENAL INJURY [None]
  - SUICIDE ATTEMPT [None]
